FAERS Safety Report 7260567-5 (Version None)
Quarter: 2011Q1

REPORT INFORMATION
  Report Type: 
  Country: None (occurrence: None)
  Receive Date: 20110130
  Receipt Date: 20101220
  Transmission Date: 20110831
  Serious: No
  Sender: FDA-Public Use
  Company Number: US-ABBOTT-10P-163-0692785-00

PATIENT
  Age: 50 Year
  Sex: Female

DRUGS (4)
  1. LORTAB [Concomitant]
     Indication: PRODUCT USED FOR UNKNOWN INDICATION
  2. NEXIUM [Concomitant]
     Indication: PRODUCT USED FOR UNKNOWN INDICATION
  3. PREMARIN [Concomitant]
     Indication: PRODUCT USED FOR UNKNOWN INDICATION
  4. HUMIRA [Suspect]
     Indication: PSORIASIS
     Dates: start: 20100501, end: 20101108

REACTIONS (11)
  - NASOPHARYNGITIS [None]
  - PARANASAL SINUS HYPERSECRETION [None]
  - PSORIASIS [None]
  - COUGH [None]
  - DRUG DOSE OMISSION [None]
  - RHINORRHOEA [None]
  - ERYTHEMA [None]
  - EXFOLIATIVE RASH [None]
  - RESPIRATORY TRACT CONGESTION [None]
  - SPUTUM DISCOLOURED [None]
  - HYPERSENSITIVITY [None]
